FAERS Safety Report 9351024 (Version 1)
Quarter: 2013Q2

REPORT INFORMATION
  Report Type: Spontaneous
  Country: US (occurrence: US)
  Receive Date: 20130617
  Receipt Date: 20130617
  Transmission Date: 20140414
  Serious: No
  Sender: FDA-Public Use
  Company Number: US-BAYER-2013-070877

PATIENT
  Age: 84 Year
  Sex: Male

DRUGS (9)
  1. STAXYN (FDT/ODT) [Suspect]
     Indication: ERECTILE DYSFUNCTION
     Dosage: 10 MG, ONCE
     Route: 048
  2. STAXYN (FDT/ODT) [Suspect]
     Indication: ERECTILE DYSFUNCTION
     Dosage: 10 MG, ONCE
     Route: 048
  3. FUROSEMIDE [Concomitant]
     Dosage: 40 MG, DAILY
  4. AMLODIPINE [Concomitant]
     Dosage: 5 MG, DAILY
  5. ISOSORBIDE [Concomitant]
     Dosage: 1 DF, BID
  6. SIMVASTATIN [Concomitant]
     Dosage: 20 MG, QD
  7. METOPROLOL [Concomitant]
     Dosage: 25 QD
  8. MULTIVITAMIN [Concomitant]
  9. INSULIN [Concomitant]

REACTIONS (1)
  - Drug ineffective [None]
